FAERS Safety Report 21682351 (Version 2)
Quarter: 2022Q4

REPORT INFORMATION
  Report Type: Report from Study
  Country: US (occurrence: US)
  Receive Date: 20221205
  Receipt Date: 20221209
  Transmission Date: 20230113
  Serious: No
  Sender: FDA-Public Use
  Company Number: US-ABBVIE-4217615

PATIENT
  Sex: Female

DRUGS (2)
  1. HUMIRA [Suspect]
     Active Substance: ADALIMUMAB
     Indication: Hidradenitis
     Dosage: FORM STRENGTH: 40 MILLIGRAM?HUMIRA CITRATE FREE PEN
     Route: 058
     Dates: start: 202205
  2. HUMIRA [Suspect]
     Active Substance: ADALIMUMAB
     Dosage: FORM STRENGTH: 40 MILLIGRAM?HUMIRA CF PEN?RESTART DATE WAS 2022
     Route: 058

REACTIONS (6)
  - Upper respiratory tract infection [Recovered/Resolved]
  - Pharyngitis [Recovering/Resolving]
  - Respiratory syncytial virus infection [Recovering/Resolving]
  - Hidradenitis [Recovering/Resolving]
  - COVID-19 [Recovering/Resolving]
  - Scar [Recovering/Resolving]
